FAERS Safety Report 23028438 (Version 3)
Quarter: 2023Q4

REPORT INFORMATION
  Report Type: Spontaneous
  Country: JP (occurrence: JP)
  Receive Date: 20231004
  Receipt Date: 20231228
  Transmission Date: 20240110
  Serious: Yes (Other)
  Sender: FDA-Public Use
  Company Number: JP-OTSUKA-2023_025731

PATIENT
  Age: 63 Year
  Sex: Female

DRUGS (17)
  1. ABILIFY [Suspect]
     Active Substance: ARIPIPRAZOLE
     Indication: Schizophrenia
     Dosage: 3MG/DAY
     Route: 048
     Dates: start: 20170803
  2. ABILIFY [Suspect]
     Active Substance: ARIPIPRAZOLE
     Dosage: 3MG/DAY
     Route: 048
     Dates: start: 20160714, end: 20160726
  3. ABILIFY [Suspect]
     Active Substance: ARIPIPRAZOLE
     Dosage: 3MG/DAY
     Route: 048
     Dates: start: 20170126, end: 20170705
  4. ABILIFY [Suspect]
     Active Substance: ARIPIPRAZOLE
     Indication: Schizophrenia
     Dosage: 6MG/DAY
     Route: 048
     Dates: start: 20170803
  5. ABILIFY [Suspect]
     Active Substance: ARIPIPRAZOLE
     Dosage: 6MG/DAY
     Route: 048
     Dates: start: 20160616, end: 20160629
  6. ABILIFY [Suspect]
     Active Substance: ARIPIPRAZOLE
     Dosage: 6MG/DAY
     Route: 048
     Dates: start: 20160727, end: 20160914
  7. ABILIFY [Suspect]
     Active Substance: ARIPIPRAZOLE
     Dosage: 6MG/DAY
     Route: 048
     Dates: start: 20161020, end: 20170125
  8. ABILIFY [Suspect]
     Active Substance: ARIPIPRAZOLE
     Indication: Schizophrenia
     Dosage: 12MG/DAY
     Route: 048
     Dates: start: 20161020, end: 20170802
  9. ABILIFY [Suspect]
     Active Substance: ARIPIPRAZOLE
     Dosage: 12MG/DAY
     Route: 048
     Dates: start: 20160630, end: 20160914
  10. ABILIFY [Suspect]
     Active Substance: ARIPIPRAZOLE
     Dosage: 24MG/DAY
     Route: 048
     Dates: start: 20160915, end: 20161019
  11. RISPERIDONE [Suspect]
     Active Substance: RISPERIDONE
     Indication: Product used for unknown indication
     Dosage: 1 TABLET/DAY
     Route: 048
     Dates: start: 20160817, end: 20160914
  12. RISPERIDONE [Suspect]
     Active Substance: RISPERIDONE
     Dosage: 2 TABLETS/DAY
     Route: 048
     Dates: start: 20160327, end: 20160406
  13. RISPERIDONE [Suspect]
     Active Substance: RISPERIDONE
     Dosage: 1 TABLET/DAY
     Route: 048
     Dates: start: 20160407, end: 20160421
  14. RISPERIDONE [Suspect]
     Active Substance: RISPERIDONE
     Dosage: 2 TABLETS/DAY
     Route: 048
     Dates: start: 20160526, end: 20160816
  15. RISPERIDONE [Suspect]
     Active Substance: RISPERIDONE
     Indication: Product used for unknown indication
     Dosage: 2 TABLETS/DAY
     Route: 048
     Dates: start: 20160421, end: 20160525
  16. RISPERIDONE [Suspect]
     Active Substance: RISPERIDONE
     Dosage: 1 TABLET/DAY
     Route: 048
     Dates: start: 20160407, end: 20160420
  17. RISPERIDONE [Suspect]
     Active Substance: RISPERIDONE
     Indication: Product used for unknown indication
     Dosage: 1ML/DAY
     Route: 048
     Dates: start: 20160512, end: 20160831

REACTIONS (1)
  - Chronic kidney disease [Not Recovered/Not Resolved]

NARRATIVE: CASE EVENT DATE: 20230803
